FAERS Safety Report 19304938 (Version 1)
Quarter: 2021Q2

REPORT INFORMATION
  Report Type: Spontaneous
  Country: US (occurrence: US)
  Receive Date: 20210526
  Receipt Date: 20210526
  Transmission Date: 20210717
  Serious: Yes (Other)
  Sender: FDA-Public Use
  Company Number: US-AMARIN PHARMA, INC.-2021AMR000365

PATIENT
  Age: 67 Year
  Sex: Male
  Weight: 62.65 kg

DRUGS (3)
  1. VASCEPA [Suspect]
     Active Substance: ICOSAPENT ETHYL
     Indication: TYPE 2 DIABETES MELLITUS
  2. VASCEPA [Suspect]
     Active Substance: ICOSAPENT ETHYL
     Indication: BLOOD TRIGLYCERIDES INCREASED
     Dates: start: 2015, end: 20210517
  3. VASCEPA [Suspect]
     Active Substance: ICOSAPENT ETHYL
     Indication: BLOOD CHOLESTEROL INCREASED

REACTIONS (7)
  - Malaise [Unknown]
  - Gait inability [Unknown]
  - Parkinson^s disease [Unknown]
  - Nephrolithiasis [Recovered/Resolved]
  - Vomiting [Unknown]
  - Product odour abnormal [Unknown]
  - Fall [Recovering/Resolving]

NARRATIVE: CASE EVENT DATE: 2020
